FAERS Safety Report 5321131-8 (Version None)
Quarter: 2007Q2

REPORT INFORMATION
  Report Type: 
  Country: None (occurrence: None)
  Receive Date: 20070507
  Receipt Date: 20070507
  Transmission Date: 20071010
  Serious: Yes (Life-Threatening, Hospitalization, Other)
  Sender: FDA-Public Use
  Company Number: None

PATIENT
  Age: 59 Year
  Sex: Male
  Weight: 111.1313 kg

DRUGS (3)
  1. ZELNORM [Suspect]
     Indication: CONSTIPATION
     Dosage: 6MG. TWICE DAILY PO
     Route: 048
     Dates: start: 20060525, end: 20070503
  2. ZELNORM [Suspect]
     Indication: IRRITABLE BOWEL SYNDROME
     Dosage: 6MG. TWICE DAILY PO
     Route: 048
     Dates: start: 20060525, end: 20070503
  3. EFFEXOR [Concomitant]

REACTIONS (2)
  - CARDIAC DISORDER [None]
  - SILENT MYOCARDIAL INFARCTION [None]
